FAERS Safety Report 5970960-6 (Version None)
Quarter: 2008Q4

REPORT INFORMATION
  Report Type: 
  Country: None (occurrence: None)
  Receive Date: 20081128
  Receipt Date: 20081119
  Transmission Date: 20090506
  Serious: Yes (Other)
  Sender: FDA-Public Use
  Company Number: PHHY2008JP07800

PATIENT
  Age: 76 Year
  Sex: Female

DRUGS (1)
  1. ZOMETA [Suspect]
     Indication: METASTASES TO BONE
     Dosage: 4 MG, QMO
     Route: 042
     Dates: start: 20060701, end: 20070301

REACTIONS (6)
  - IMPAIRED HEALING [None]
  - ORAL PUSTULE [None]
  - OSTEONECROSIS [None]
  - PERIODONTAL DISEASE [None]
  - SWELLING [None]
  - TOOTH EXTRACTION [None]
